FAERS Safety Report 21001412 (Version 4)
Quarter: 2025Q3

REPORT INFORMATION
  Report Type: Report from Study
  Country: US (occurrence: US)
  Receive Date: 20220624
  Receipt Date: 20250915
  Transmission Date: 20251020
  Serious: Yes (Hospitalization, Other)
  Sender: TAKEDA
  Company Number: US-TAKEDA-2022TUS029075

PATIENT
  Age: 57 Year
  Sex: Male

DRUGS (5)
  1. TEDUGLUTIDE [Suspect]
     Active Substance: TEDUGLUTIDE
     Indication: Short-bowel syndrome
     Dosage: 1.9 MILLIGRAM, QD
     Dates: start: 20210418
  2. TEDUGLUTIDE [Suspect]
     Active Substance: TEDUGLUTIDE
     Indication: Colitis ulcerative
     Dosage: 0.20 MILLILITER, QD
     Dates: start: 202203
  3. TEDUGLUTIDE [Suspect]
     Active Substance: TEDUGLUTIDE
     Dosage: 1.9 MILLIGRAM, QD
     Dates: start: 202204, end: 20220501
  4. TEDUGLUTIDE [Suspect]
     Active Substance: TEDUGLUTIDE
     Dosage: 1.9 MILLIGRAM, QD
     Dates: start: 20220422
  5. TEDUGLUTIDE [Suspect]
     Active Substance: TEDUGLUTIDE
     Dosage: 0.20 MILLILITER, QD

REACTIONS (9)
  - Tuberculosis [Unknown]
  - Gastrointestinal scarring [Unknown]
  - Weight increased [Unknown]
  - Peripheral swelling [Unknown]
  - Gout [Unknown]
  - Ageusia [Unknown]
  - Depression [Unknown]
  - Hypervolaemia [Unknown]
  - Nausea [Unknown]

NARRATIVE: CASE EVENT DATE: 20210418
